FAERS Safety Report 20532583 (Version 1)
Quarter: 2022Q1

REPORT INFORMATION
  Report Type: Spontaneous
  Country: US (occurrence: None)
  Receive Date: 20220301
  Receipt Date: 20220301
  Transmission Date: 20220423
  Serious: Yes (Hospitalization)
  Sender: FDA-Public Use
  Company Number: None

PATIENT
  Sex: Male

DRUGS (9)
  1. ERLEADA [Suspect]
     Active Substance: APALUTAMIDE
     Indication: Prostate cancer
     Dosage: FREQUENCY : DAILY;?
     Route: 048
     Dates: start: 20210129
  2. ATORVASTATIN [Concomitant]
     Active Substance: ATORVASTATIN
  3. ERLEADA [Concomitant]
     Active Substance: APALUTAMIDE
  4. LIPITOR TAB [Concomitant]
  5. METFORMIN TAB [Concomitant]
  6. MULTI-VIT/TAB MINERALS [Concomitant]
  7. NASAL DECONG SPR [Concomitant]
  8. TAMSULOSIN [Concomitant]
     Active Substance: TAMSULOSIN
  9. TYLENOL TAB [Concomitant]

REACTIONS (1)
  - Therapy interrupted [None]
